FAERS Safety Report 7530711-0 (Version None)
Quarter: 2011Q2

REPORT INFORMATION
  Report Type: 
  Country: None (occurrence: None)
  Receive Date: 20110607
  Receipt Date: 20110606
  Transmission Date: 20111010
  Serious: Yes (Disabling, Other)
  Sender: FDA-Public Use
  Company Number: IT-PFIZER INC-2011096611

PATIENT
  Age: 6 Month
  Sex: Female

DRUGS (7)
  1. REVATIO [Suspect]
     Indication: PULMONARY HYPERTENSION
     Dosage: 3 MG, DAILY
     Route: 048
     Dates: start: 20110323, end: 20110428
  2. FUROSEMIDE [Concomitant]
     Dosage: 12 MG, UNK
     Route: 042
     Dates: start: 20110318
  3. SYNAGIS [Concomitant]
     Dosage: 60 MG, UNK
     Dates: start: 20110321, end: 20110321
  4. SPIRONOLACTONE W/ HYDROCHLOROTHIAZIDE [Concomitant]
     Dosage: 8 MG, UNK
     Route: 048
  5. ACETYLSALICYLIC ACID [Concomitant]
     Dosage: 50 MG, UNK
     Route: 048
     Dates: start: 20110316
  6. CEFUROXIME [Concomitant]
     Dosage: 2.55 G, UNK
     Route: 042
     Dates: start: 20110326, end: 20110402
  7. RANITIDINE [Concomitant]
     Dosage: 20 MG, UNK
     Dates: start: 20110326

REACTIONS (5)
  - EYE MOVEMENT DISORDER [None]
  - RETINAL HAEMORRHAGE [None]
  - OPTIC ATROPHY [None]
  - RETINAL EXUDATES [None]
  - BLINDNESS [None]
